FAERS Safety Report 7590587-2 (Version None)
Quarter: 2011Q3

REPORT INFORMATION
  Report Type: 
  Country: None (occurrence: None)
  Receive Date: 20110705
  Receipt Date: 20110412
  Transmission Date: 20111222
  Serious: Yes (Hospitalization, Other)
  Sender: FDA-Public Use
  Company Number: FR-BAXTER-2011BH008783

PATIENT
  Age: 5 Year
  Sex: Male
  Weight: 20 kg

DRUGS (1)
  1. ADVATE [Suspect]
     Indication: FACTOR VIII DEFICIENCY
     Route: 042
     Dates: start: 20090402, end: 20090402

REACTIONS (2)
  - FACTOR VIII INHIBITION [None]
  - HAEMARTHROSIS [None]
